FAERS Safety Report 19725227 (Version 1)
Quarter: 2021Q3

REPORT INFORMATION
  Report Type: Other
  Country: DK (occurrence: DK)
  Receive Date: 20210820
  Receipt Date: 20210820
  Transmission Date: 20211014
  Serious: Yes (Hospitalization, Other)
  Sender: FDA-Public Use
  Company Number: DK-PHARMGEN-000012

PATIENT
  Age: 6 Year
  Sex: Female

DRUGS (2)
  1. SOLIFENACIN [Concomitant]
     Active Substance: SOLIFENACIN
     Indication: PROPHYLAXIS URINARY TRACT INFECTION
  2. NITROFURANTOIN. [Suspect]
     Active Substance: NITROFURANTOIN
     Indication: PROPHYLAXIS URINARY TRACT INFECTION
     Dosage: 25 MG/DAY, TABLETS.
     Route: 048

REACTIONS (3)
  - Pneumocystis jirovecii infection [Recovered/Resolved]
  - Pulmonary fibrosis [Recovered/Resolved]
  - Condition aggravated [Recovered/Resolved]
